FAERS Safety Report 16636274 (Version 2)
Quarter: 2019Q3

REPORT INFORMATION
  Report Type: Spontaneous
  Country: US (occurrence: US)
  Receive Date: 20190726
  Receipt Date: 20190905
  Transmission Date: 20191004
  Serious: No
  Sender: FDA-Public Use
  Company Number: US-JNJFOC-20190735318

PATIENT
  Age: 22 Year
  Sex: Female
  Weight: 157 kg

DRUGS (1)
  1. REMICADE [Suspect]
     Active Substance: INFLIXIMAB
     Indication: PYODERMA GANGRENOSUM
     Route: 042

REACTIONS (3)
  - Product use in unapproved indication [Unknown]
  - Off label use [Unknown]
  - Drug ineffective [Unknown]
